FAERS Safety Report 19022291 (Version 2)
Quarter: 2021Q1

REPORT INFORMATION
  Report Type: Report from Study
  Country: CA (occurrence: CA)
  Receive Date: 20210318
  Receipt Date: 20210324
  Transmission Date: 20210420
  Serious: Yes (Hospitalization, Other)
  Sender: FDA-Public Use
  Company Number: CA-JNJFOC-20210125064

PATIENT
  Age: 44 Year
  Sex: Female

DRUGS (2)
  1. STELARA [Suspect]
     Active Substance: USTEKINUMAB
  2. STELARA [Suspect]
     Active Substance: USTEKINUMAB
     Indication: CROHN^S DISEASE
     Route: 058
     Dates: start: 20190117

REACTIONS (10)
  - Somnolence [Unknown]
  - Inappropriate schedule of product administration [Unknown]
  - Laboratory test abnormal [Unknown]
  - Anxiety [Unknown]
  - Delusion [Unknown]
  - Hernia [Unknown]
  - Postoperative abscess [Not Recovered/Not Resolved]
  - Fatigue [Unknown]
  - Post procedural complication [Recovering/Resolving]
  - Dehydration [Unknown]

NARRATIVE: CASE EVENT DATE: 2021
